FAERS Safety Report 8292296-3 (Version None)
Quarter: 2012Q2

REPORT INFORMATION
  Report Type: 
  Country: None (occurrence: None)
  Receive Date: 20120417
  Receipt Date: 20120410
  Transmission Date: 20120825
  Serious: Yes (Hospitalization, Other)
  Sender: FDA-Public Use
  Company Number: PHHY2012DK030616

PATIENT
  Sex: Female

DRUGS (4)
  1. ZYPREXA [Suspect]
     Indication: ANXIETY
     Dates: start: 20000518
  2. EFFEXOR [Suspect]
     Indication: ANXIETY
     Route: 048
     Dates: start: 20000518
  3. CITALOPRAM HYDROBROMIDE [Suspect]
     Indication: ANXIETY
     Route: 048
     Dates: start: 20000518
  4. OXAZEPAM [Suspect]
     Indication: ANXIETY
     Route: 048
     Dates: start: 20000518

REACTIONS (15)
  - ACNE [None]
  - SCHIZOPHRENIA, PARANOID TYPE [None]
  - DELUSION [None]
  - EATING DISORDER [None]
  - GENERALISED ANXIETY DISORDER [None]
  - WEIGHT INCREASED [None]
  - DYSLALIA [None]
  - DISTURBANCE IN ATTENTION [None]
  - MEMORY IMPAIRMENT [None]
  - ANTISOCIAL BEHAVIOUR [None]
  - DEPRESSION [None]
  - PSYCHOTIC DISORDER [None]
  - HEADACHE [None]
  - FATIGUE [None]
  - OBSESSIVE THOUGHTS [None]
